FAERS Safety Report 20833976 (Version 1)
Quarter: 2022Q2

REPORT INFORMATION
  Report Type: Report from Study
  Country: IE (occurrence: None)
  Receive Date: 20220516
  Receipt Date: 20220516
  Transmission Date: 20220721
  Serious: Yes (Hospitalization)
  Sender: FDA-Public Use
  Company Number: IE-Merck Healthcare KGaA-9320789

PATIENT
  Age: 54 Year
  Sex: Female

DRUGS (4)
  1. MAVENCLAD [Suspect]
     Active Substance: CLADRIBINE
     Indication: Relapsing-remitting multiple sclerosis
     Dosage: YEAR ONE WEEK ONE THERAPY: 2 DOSAGE FORMS ON DAYS 1 AND 2 AND ONE DOSAGE FORM ON DAYS 3 TO 5
     Route: 048
     Dates: start: 20190910
  2. MAVENCLAD [Suspect]
     Active Substance: CLADRIBINE
     Dosage: YEAR ONE WEEK TWO THERAPY: 2 DOSAGE FORMS ON DAYS 1 AND 2 AND ONE DOSAGE FORM ON DAYS 3 TO 5
     Route: 048
     Dates: start: 20191008
  3. MAVENCLAD [Suspect]
     Active Substance: CLADRIBINE
     Dosage: YEAR TWO WEEK ONE THERAPY: 2 DOSAGE FORMS ON DAYS 1 AND 2 AND ONE DOSAGE FORM ON DAYS 3 TO 5
     Route: 048
     Dates: start: 20201109
  4. MAVENCLAD [Suspect]
     Active Substance: CLADRIBINE
     Dosage: YEAR TWO WEEK TWO THERAPY: 2 DOSAGE FORMS ON DAYS 1 AND 2 AND ONE DOSAGE FORM ON DAYS 3 TO 5
     Route: 048
     Dates: start: 20201207

REACTIONS (2)
  - Sepsis [Recovered/Resolved]
  - Exposure to SARS-CoV-2 [Unknown]

NARRATIVE: CASE EVENT DATE: 20220101
